FAERS Safety Report 16085239 (Version 1)
Quarter: 2019Q2

REPORT INFORMATION
  Report Type: Spontaneous
  Country: US (occurrence: US)
  Receive Date: 20190318
  Receipt Date: 20190318
  Transmission Date: 20190711
  Serious: Yes (Other)
  Sender: FDA-Public Use
  Company Number: None

PATIENT
  Age: 57 Year
  Sex: Female
  Weight: 96.3 kg

DRUGS (1)
  1. METHYLPREDNISOLONE. [Suspect]
     Active Substance: METHYLPREDNISOLONE
     Indication: INFLAMMATION
     Dosage: ?          QUANTITY:21 TABLET(S);OTHER FREQUENCY:6 DAYS DOSAGE;?
     Route: 048
     Dates: start: 20190228, end: 20190305

REACTIONS (4)
  - Pain [None]
  - Abnormal sensation in eye [None]
  - Paraesthesia [None]
  - Head discomfort [None]

NARRATIVE: CASE EVENT DATE: 20190306
